FAERS Safety Report 11781457 (Version 3)
Quarter: 2016Q2

REPORT INFORMATION
  Report Type: Spontaneous
  Country: US (occurrence: US)
  Receive Date: 20151126
  Receipt Date: 20160428
  Transmission Date: 20160815
  Serious: Yes (Disabling, Other)
  Sender: FDA-Public Use
  Company Number: US-JNJFOC-20151119141

PATIENT
  Age: 55 Year
  Sex: Female
  Weight: 84.37 kg

DRUGS (2)
  1. INVOKANA [Suspect]
     Active Substance: CANAGLIFLOZIN
     Indication: TYPE 2 DIABETES MELLITUS
     Route: 048
     Dates: end: 201511
  2. INVOKANA [Suspect]
     Active Substance: CANAGLIFLOZIN
     Indication: TYPE 2 DIABETES MELLITUS
     Route: 048
     Dates: start: 20140226, end: 20151007

REACTIONS (2)
  - Vitreous haemorrhage [Recovering/Resolving]
  - Retinopathy proliferative [Recovering/Resolving]

NARRATIVE: CASE EVENT DATE: 201510
